FAERS Safety Report 7165038-2 (Version None)
Quarter: 2010Q4

REPORT INFORMATION
  Report Type: 
  Country: None (occurrence: None)
  Receive Date: 20101215
  Receipt Date: 20091215
  Transmission Date: 20110411
  Serious: No
  Sender: FDA-Public Use
  Company Number: US-AMGEN-KDL380774

PATIENT

DRUGS (1)
  1. ENBREL [Suspect]
     Indication: RHEUMATOID ARTHRITIS
     Dosage: 50 MG, QWK
     Route: 058
     Dates: start: 20080116

REACTIONS (8)
  - ANKLE FRACTURE [None]
  - ARTHRITIS [None]
  - FALL [None]
  - GASTROINTESTINAL DISORDER [None]
  - HEADACHE [None]
  - SINUSITIS [None]
  - WEIGHT INCREASED [None]
  - WRIST FRACTURE [None]
